FAERS Safety Report 9554682 (Version 2)
Quarter: 2013Q3

REPORT INFORMATION
  Report Type: Report from Study
  Country: GB (occurrence: GB)
  Receive Date: 20130926
  Receipt Date: 20130930
  Transmission Date: 20140515
  Serious: Yes (Hospitalization)
  Sender: FDA-Public Use
  Company Number: GB-BAXTER-2013BAX037250

PATIENT
  Age: 6 Year
  Sex: Male
  Weight: 18.5 kg

DRUGS (3)
  1. FEIBA IMMUNO FACTOR VIII INHIBITOR BYPASSING FRACTION HUMAN VAPOUR HEA [Suspect]
     Indication: FACTOR VIII DEFICIENCY
     Route: 042
     Dates: start: 20101111, end: 20111122
  2. FEIBA IMMUNO FACTOR VIII INHIBITOR BYPASSING FRACTION HUMAN VAPOUR HEA [Suspect]
     Indication: FACTOR VIII INHIBITION
     Route: 042
     Dates: start: 20111122, end: 20120112
  3. FEIBA IMMUNO FACTOR VIII INHIBITOR BYPASSING FRACTION HUMAN VAPOUR HEA [Suspect]
     Indication: PROPHYLAXIS
     Route: 042
     Dates: start: 20120113, end: 20120114

REACTIONS (2)
  - Joint swelling [Recovered/Resolved with Sequelae]
  - Drug ineffective [Recovered/Resolved with Sequelae]
